FAERS Safety Report 7347286-1 (Version None)
Quarter: 2011Q1

REPORT INFORMATION
  Report Type: 
  Country: None (occurrence: None)
  Receive Date: 20110311
  Receipt Date: 20110225
  Transmission Date: 20110831
  Serious: Yes (Hospitalization, Other)
  Sender: FDA-Public Use
  Company Number: PHHY2011TR06601

PATIENT
  Age: 44 Year
  Sex: Female

DRUGS (6)
  1. ANTIARRHYTHMICS, CLASS I AND III [Concomitant]
  2. ENOXAPARIN SODIUM [Concomitant]
  3. DIGOXIN [Concomitant]
  4. FRESH FROZEN PLASMA [Concomitant]
  5. WARFARIN [Suspect]
     Dosage: 5 MG, QD
  6. VITAMIN K TAB [Concomitant]

REACTIONS (11)
  - PERITONEAL HAEMORRHAGE [None]
  - ABDOMINAL TENDERNESS [None]
  - BLOOD PRESSURE DECREASED [None]
  - OVARIAN CYST [None]
  - LOCALISED INTRAABDOMINAL FLUID COLLECTION [None]
  - NAUSEA [None]
  - INTRA-ABDOMINAL HAEMORRHAGE [None]
  - ABDOMINAL PAIN UPPER [None]
  - VOMITING [None]
  - WHITE BLOOD CELL COUNT INCREASED [None]
  - OVERDOSE [None]
